FAERS Safety Report 21619139 (Version 1)
Quarter: 2022Q4

REPORT INFORMATION
  Report Type: Spontaneous
  Country: JP (occurrence: JP)
  Receive Date: 20221120
  Receipt Date: 20221120
  Transmission Date: 20230113
  Serious: Yes (Other)
  Sender: FDA-Public Use
  Company Number: JP-BRISTOL-MYERS SQUIBB COMPANY-2022-139259

PATIENT
  Age: 78 Year

DRUGS (2)
  1. YERVOY [Suspect]
     Active Substance: IPILIMUMAB
     Indication: Product used for unknown indication
     Route: 065
  2. OPDIVO [Suspect]
     Active Substance: NIVOLUMAB
     Indication: Product used for unknown indication
     Route: 065

REACTIONS (8)
  - Decreased appetite [Unknown]
  - Dizziness [Unknown]
  - Abdominal pain [Unknown]
  - Fatigue [Unknown]
  - Adrenal insufficiency [Unknown]
  - Pruritus [Unknown]
  - Hallucination [Unknown]
  - Poor quality sleep [Unknown]
